FAERS Safety Report 15093944 (Version 1)
Quarter: 2018Q2

REPORT INFORMATION
  Report Type: Report from Study
  Country: US (occurrence: US)
  Receive Date: 20180629
  Receipt Date: 20180629
  Transmission Date: 20180711
  Serious: Yes (Other)
  Sender: FDA-Public Use
  Company Number: US-TESARO, INC-US-2018TSO03205

PATIENT

DRUGS (2)
  1. ZEJULA [Suspect]
     Active Substance: NIRAPARIB
     Dosage: 100 MG, QD
     Route: 048
     Dates: start: 20180328
  2. ZEJULA [Suspect]
     Active Substance: NIRAPARIB
     Indication: OVARIAN CANCER
     Dosage: 300 MG, UNK
     Route: 048
     Dates: start: 20180223

REACTIONS (7)
  - Asthenia [Unknown]
  - Foot fracture [Unknown]
  - Discomfort [Unknown]
  - Memory impairment [Unknown]
  - Eastern Cooperative Oncology Group performance status worsened [Unknown]
  - Nausea [Unknown]
  - Fall [Unknown]
